FAERS Safety Report 18566310 (Version 9)
Quarter: 2022Q3

REPORT INFORMATION
  Report Type: Report from Study
  Country: US (occurrence: US)
  Receive Date: 20201201
  Receipt Date: 20220817
  Transmission Date: 20221027
  Serious: Yes (Other)
  Sender: FDA-Public Use
  Company Number: US-TAKEDA-US202025882

PATIENT
  Age: 8 Year
  Sex: Male
  Weight: 40 kg

DRUGS (5)
  1. IDURSULFASE [Suspect]
     Active Substance: IDURSULFASE
     Indication: Mucopolysaccharidosis II
     Dosage: 24 MILLIGRAM, 1/WEEK
     Route: 042
     Dates: start: 201706
  2. IDURSULFASE [Suspect]
     Active Substance: IDURSULFASE
     Indication: Mucopolysaccharidosis
     Dosage: 24 MILLIGRAM, 1/WEEK
     Route: 042
  3. IDURSULFASE [Suspect]
     Active Substance: IDURSULFASE
     Dosage: 24 MILLIGRAM, 1/WEEK
     Route: 042
  4. IDURSULFASE [Suspect]
     Active Substance: IDURSULFASE
     Dosage: 24 MILLIGRAM, 1/WEEK
     Route: 050
  5. IDURSULFASE [Suspect]
     Active Substance: IDURSULFASE
     Dosage: 24 MILLIGRAM, 1/WEEK
     Route: 042
     Dates: start: 201303

REACTIONS (6)
  - Device dislocation [Unknown]
  - Ear haemorrhage [Unknown]
  - COVID-19 [Unknown]
  - Nasopharyngitis [Unknown]
  - Aggression [Unknown]
  - Product dose omission issue [Unknown]

NARRATIVE: CASE EVENT DATE: 20200725
